FAERS Safety Report 8520734-7 (Version None)
Quarter: 2012Q3

REPORT INFORMATION
  Report Type: 
  Country: None (occurrence: None)
  Receive Date: 20120719
  Receipt Date: 20120702
  Transmission Date: 20120928
  Serious: Yes (Hospitalization, Disabling, Other)
  Sender: FDA-Public Use
  Company Number: US-009507513-1203USA03485

PATIENT

DRUGS (19)
  1. FOSAMAX PLUS D [Suspect]
     Indication: OSTEOPENIA
     Dosage: 70 MG, QW
     Route: 048
     Dates: start: 20070101, end: 20071106
  2. REQUIP [Concomitant]
     Dosage: 25 MG, HS
  3. FERROUS SULFATE TAB [Concomitant]
  4. ULTRAM [Concomitant]
  5. MAGNESIUM OXIDE [Concomitant]
     Dosage: 400 MG, BID
     Route: 048
  6. FOSAMAX PLUS D [Suspect]
     Indication: OSTEOPOROSIS
  7. PULMICORT [Concomitant]
  8. PROTONIX [Concomitant]
  9. ALENDRONATE SODIUM [Suspect]
     Dosage: 70 MG, QW
     Route: 048
     Dates: start: 20090121, end: 20101129
  10. MOBIC [Concomitant]
  11. OS-CAL + D [Concomitant]
     Dosage: 500 MG, BID
     Route: 048
  12. FOSAMAX [Suspect]
     Indication: OSTEOPENIA
     Route: 048
     Dates: start: 20000101, end: 20100101
  13. FOSAMAX [Suspect]
     Indication: OSTEOPOROSIS
  14. HYDROCODONE BITARTRATE [Concomitant]
  15. COLACE [Concomitant]
     Dosage: 100 MG, BID
     Route: 048
  16. CALCIUM (UNSPECIFIED) [Concomitant]
  17. MK-9278 [Concomitant]
     Dosage: UNK
     Route: 048
  18. OXYCONTIN [Concomitant]
     Dosage: 10 MG, UNK
     Route: 048
  19. FERROUS SULFATE (+) VITAMIN B COMPLEX [Concomitant]
     Dosage: UNK, BID
     Route: 048

REACTIONS (40)
  - HAEMATOCRIT DECREASED [None]
  - GRANULOMA [None]
  - MITRAL VALVE PROLAPSE [None]
  - BRONCHITIS [None]
  - HERPES ZOSTER [None]
  - DRUG INEFFECTIVE [None]
  - STRESS FRACTURE [None]
  - BONE DENSITY DECREASED [None]
  - RESTLESS LEGS SYNDROME [None]
  - DEPRESSION [None]
  - ERYTHEMA [None]
  - HAEMOGLOBIN DECREASED [None]
  - CHEST PAIN [None]
  - WEIGHT DECREASED [None]
  - BURSITIS [None]
  - HYPOMAGNESAEMIA [None]
  - CARDIAC FAILURE CONGESTIVE [None]
  - HYPERTHYROIDISM [None]
  - CHRONIC OBSTRUCTIVE PULMONARY DISEASE [None]
  - ATROPHIC VULVOVAGINITIS [None]
  - FEMUR FRACTURE [None]
  - BASAL CELL CARCINOMA [None]
  - OSTEOPOROSIS [None]
  - BIOPSY BREAST [None]
  - SPINAL OSTEOARTHRITIS [None]
  - NEURALGIA [None]
  - TACHYCARDIA [None]
  - OSTEOARTHRITIS [None]
  - ANXIETY [None]
  - HYPERLIPIDAEMIA [None]
  - CORONARY ARTERY DISEASE [None]
  - HIATUS HERNIA [None]
  - DYSPNOEA [None]
  - GASTROOESOPHAGEAL REFLUX DISEASE [None]
  - HEADACHE [None]
  - ANAEMIA [None]
  - CHOLECYSTECTOMY [None]
  - HYPERTENSION [None]
  - CARDIOMYOPATHY [None]
  - INTERVERTEBRAL DISC PROTRUSION [None]
